FAERS Safety Report 13454995 (Version 6)
Quarter: 2017Q4

REPORT INFORMATION
  Report Type: Report from Study
  Country: US (occurrence: US)
  Receive Date: 20170419
  Receipt Date: 20171026
  Transmission Date: 20180320
  Serious: Yes (Hospitalization, Other)
  Sender: FDA-Public Use
  Company Number: US-AMGEN-USACT2017045016

PATIENT
  Age: 63 Year
  Sex: Male
  Weight: 116.8 kg

DRUGS (79)
  1. REVLIMID [Concomitant]
     Active Substance: LENALIDOMIDE
     Indication: PLASMA CELL MYELOMA
     Dosage: UNK
     Dates: start: 20150414
  2. ACETYLCARNITINE HCL [Concomitant]
     Dosage: 1 UNK, UNK
     Route: 048
     Dates: start: 20150506
  3. ALPHA LIPOIC ACID [Concomitant]
     Active Substance: .ALPHA.-LIPOIC ACID
     Dosage: 600 MG, UNK
     Route: 048
     Dates: start: 20150506
  4. BORTEZOMIB [Concomitant]
     Active Substance: BORTEZOMIB
     Dosage: UNK
     Dates: start: 20150414, end: 20151001
  5. SODIUM CHLORIDE. [Concomitant]
     Active Substance: SODIUM CHLORIDE
     Dosage: 20 MG AND 2-75, UNK
     Route: 042
     Dates: start: 20151228, end: 20160113
  6. POTASSIUM CHLORIDE. [Concomitant]
     Active Substance: POTASSIUM CHLORIDE
     Dosage: 20 MEQ, UNK
     Dates: start: 20151229, end: 20160113
  7. MIDAZOLAM [Concomitant]
     Active Substance: MIDAZOLAM HYDROCHLORIDE
     Dosage: 2 MG, UNK
     Route: 042
     Dates: start: 20151228, end: 20151228
  8. SODIUM DIHYDROGEN PHOSPHATE [Concomitant]
     Active Substance: SODIUM PHOSPHATE
     Dosage: 250 MG, UNK
     Route: 048
     Dates: start: 20160113, end: 20160113
  9. MYCELEX TROCHE [Concomitant]
     Dosage: 10 MG, UNK, 5 TIMES A DAY
  10. DENOSUMAB [Suspect]
     Active Substance: DENOSUMAB
     Indication: PLASMA CELL MYELOMA
     Dosage: UNK
     Route: 065
     Dates: start: 20170125
  11. DRISDOL [Concomitant]
     Active Substance: ERGOCALCIFEROL
     Dosage: 50000 UNK,
     Route: 048
     Dates: start: 20160112
  12. OXYCODONE [Concomitant]
     Active Substance: OXYCODONE
     Dosage: 5-10 MG, DAILY 4-6 HOURS PRN
     Route: 048
     Dates: start: 20150506, end: 20170313
  13. AMBIEN [Concomitant]
     Active Substance: ZOLPIDEM TARTRATE
     Dosage: 5 MG, UNK
     Route: 048
     Dates: start: 20150506
  14. CALCIUM [Concomitant]
     Active Substance: CALCIUM
     Dosage: 500-1000 MG UNK AND 2 G UNK
     Dates: start: 20150518, end: 20160713
  15. ENOXAPARIN [Concomitant]
     Active Substance: ENOXAPARIN
     Dosage: 40 MG, UNK
     Route: 058
     Dates: start: 20151229, end: 20160104
  16. METRONIDAZOLE. [Concomitant]
     Active Substance: METRONIDAZOLE
     Dosage: 500 MG, UNK
     Route: 042
     Dates: start: 20160109, end: 20160112
  17. METFORMIN [Concomitant]
     Active Substance: METFORMIN HYDROCHLORIDE
     Dosage: 500 MG, UNK
     Route: 048
     Dates: start: 20160112, end: 20160112
  18. LIDOCAINE. [Concomitant]
     Active Substance: LIDOCAINE
     Dosage: 10 IU, UNK
     Route: 050
     Dates: start: 20160104, end: 20160112
  19. ZOVIRAX [Concomitant]
     Active Substance: ACYCLOVIR
     Dosage: 400 MG, TID
  20. LISTERINE ORIGINAL [Concomitant]
     Active Substance: EUCALYPTOL\MENTHOL\METHYL SALICYLATE\THYMOL
     Dosage: UNK
  21. ZOFRAN [Concomitant]
     Active Substance: ONDANSETRON HYDROCHLORIDE
     Dosage: 8 MG, UNK
     Route: 048
     Dates: start: 20160128
  22. BACTROBAN [Concomitant]
     Active Substance: MUPIROCIN\MUPIROCIN CALCIUM
     Dosage: 1 UNK, UNK
     Route: 061
     Dates: start: 20160103
  23. ASPIRIN. [Concomitant]
     Active Substance: ASPIRIN
     Dosage: 325 MG, UNK
     Route: 048
     Dates: start: 20110228
  24. HYDROCORTISONE. [Concomitant]
     Active Substance: HYDROCORTISONE
     Dosage: 1 UNK, UNK
     Route: 061
     Dates: start: 20160112
  25. COD LIVER OIL [Concomitant]
     Active Substance: COD LIVER OIL
     Dosage: 1 UNK,
     Route: 048
     Dates: start: 20150506
  26. DIPHENHYDRAMINE. [Concomitant]
     Active Substance: DIPHENHYDRAMINE
     Dosage: 25 MG AND 10 IU, UNK
     Dates: start: 20151231, end: 20160113
  27. AMOXICILLIN CLAVULANIC ACID [Concomitant]
     Active Substance: AMOXICILLIN\CLAVULANIC ACID
     Dosage: 1 UNK AND 875 MG, UNK
     Route: 048
     Dates: start: 20151005
  28. ALUM [Concomitant]
     Active Substance: POTASSIUM ALUM
     Dosage: 10 IU, UNK
     Route: 050
     Dates: start: 20160104, end: 20160112
  29. OXYCONTIN [Concomitant]
     Active Substance: OXYCODONE HYDROCHLORIDE
     Dosage: 10 MG, Q12H
  30. MELPHALAN. [Concomitant]
     Active Substance: MELPHALAN
     Indication: PLASMA CELL MYELOMA
     Dosage: UNK
  31. DENOSUMAB [Suspect]
     Active Substance: DENOSUMAB
     Indication: PLASMA CELL MYELOMA
     Dosage: 120 MG, UNK
     Route: 065
     Dates: start: 20150518, end: 20161130
  32. KYPROLIS [Concomitant]
     Active Substance: CARFILZOMIB
     Indication: PLASMA CELL MYELOMA
     Dosage: UNK
     Dates: start: 20151001
  33. PRAMOXINE [Concomitant]
     Active Substance: PRAMOXINE
     Dosage: 1 UNK, UNK
     Route: 061
     Dates: start: 20160112
  34. PROCHLORPERAZINE. [Concomitant]
     Active Substance: PROCHLORPERAZINE
     Dosage: 10 MG, UNK
     Route: 048
     Dates: start: 20150506, end: 20160420
  35. CLOTRIMAZOLE. [Concomitant]
     Active Substance: CLOTRIMAZOLE
     Dosage: 1 UNK,  5 TIMES DAILY
     Route: 048
     Dates: start: 20160105
  36. BENAZEPRIL [Concomitant]
     Active Substance: BENAZEPRIL HYDROCHLORIDE
     Dosage: 20 MG, UNK
     Route: 048
     Dates: start: 20151229, end: 20160102
  37. OLANZAPIN [Concomitant]
     Active Substance: OLANZAPINE
     Dosage: 5 MG, UNK
     Route: 048
     Dates: start: 20151231, end: 20160112
  38. MAG [Concomitant]
     Dosage: 10 IU, UNK
     Route: 050
     Dates: start: 20160104, end: 20160112
  39. AMOXIL [Concomitant]
     Active Substance: AMOXICILLIN
     Dosage: 400 MG, TID
  40. FILGRASTIM [Concomitant]
     Active Substance: FILGRASTIM
     Dosage: 600-960 MUG, UNK
     Route: 058
     Dates: start: 20151010, end: 20160113
  41. CHLORHEXIDINE [Concomitant]
     Active Substance: CHLORHEXIDINE
     Dosage: 15 ML, UNK
     Dates: start: 20151005
  42. FAMOTIDINE. [Concomitant]
     Active Substance: FAMOTIDINE
     Dosage: 20 MG, UNK
     Route: 042
     Dates: start: 20151231, end: 20160105
  43. ATIVAN [Concomitant]
     Active Substance: LORAZEPAM
     Dosage: 0.5-2 MG , UNK
     Route: 048
     Dates: start: 20151215, end: 20160112
  44. LORATADINE. [Concomitant]
     Active Substance: LORATADINE
     Dosage: 10 MG, UNK
     Route: 048
     Dates: start: 20151228, end: 20151229
  45. HYDROMORPHONE HYDROCHLORIDE. [Concomitant]
     Active Substance: HYDROMORPHONE HYDROCHLORIDE
     Indication: PAIN
     Dosage: 0.5-1 MG, UNK
     Route: 042
     Dates: start: 20151228, end: 20170331
  46. CALCIUM CARBONATE. [Concomitant]
     Active Substance: CALCIUM CARBONATE
     Dosage: 500 MG, QD
  47. DEXAMETHASONE. [Concomitant]
     Active Substance: DEXAMETHASONE
     Indication: PLASMA CELL MYELOMA
     Dosage: 15 ML, BID
     Dates: start: 20150414
  48. COLACE [Concomitant]
     Active Substance: DOCUSATE SODIUM
     Dosage: 100 MG, UNK
     Route: 048
     Dates: start: 20160112
  49. SENOKOT [Concomitant]
     Active Substance: SENNOSIDES
     Dosage: 1 UNK,
     Route: 048
     Dates: start: 20160112
  50. FLAXSEED [Concomitant]
     Active Substance: FLAX SEED
     Dosage: 1000 MG, UNK
     Route: 048
     Dates: start: 20150506
  51. FOLIC ACID. [Concomitant]
     Active Substance: FOLIC ACID
     Dosage: 1 MG, UNK
     Route: 048
     Dates: start: 20151229
  52. FENTANYL. [Concomitant]
     Active Substance: FENTANYL
     Dosage: 50 MUG, UNK
     Route: 042
     Dates: start: 20151228, end: 20151228
  53. ATOVAQUONE. [Concomitant]
     Active Substance: ATOVAQUONE
     Dosage: 750 MG, UNK
     Route: 048
     Dates: start: 20151229, end: 20160128
  54. CEFEPIME [Concomitant]
     Active Substance: CEFEPIME HYDROCHLORIDE
     Dosage: 100 ML, UNK
     Route: 042
     Dates: start: 20160108, end: 20160110
  55. CEFTAZIDIME. [Concomitant]
     Active Substance: CEFTAZIDIME
     Dosage: 2 G, UNK
     Route: 042
     Dates: start: 20160110, end: 20160112
  56. SIMETHICONE (DIMETHICONE) [Concomitant]
     Active Substance: DIMETHICONE
     Dosage: 10 IU, UNK
     Route: 050
     Dates: start: 20160104, end: 20160112
  57. LOTREL [Concomitant]
     Active Substance: AMLODIPINE BESYLATE\BENAZEPRIL HYDROCHLORIDE
     Dosage: 1 UNK, UNK (5-20)
     Route: 048
     Dates: start: 20150506
  58. FLONASE [Concomitant]
     Active Substance: FLUTICASONE PROPIONATE
     Dosage: 2 UNK,
     Route: 055
     Dates: start: 20110228
  59. BACTRIM DS [Concomitant]
     Active Substance: SULFAMETHOXAZOLE\TRIMETHOPRIM
     Dosage: 160 MG, UNK
     Route: 048
     Dates: start: 20160129
  60. VITAMIN D [Concomitant]
     Active Substance: CHOLECALCIFEROL
     Dosage: 400 UNK,
     Route: 048
     Dates: start: 20150518
  61. PLERIXAFOR [Concomitant]
     Active Substance: PLERIXAFOR
     Dosage: 27000 MUG, UNK
     Route: 058
     Dates: start: 20151214, end: 20151214
  62. ACETAMINOPHEN. [Concomitant]
     Active Substance: ACETAMINOPHEN
     Dosage: 500 MG, UNK
     Route: 048
     Dates: start: 20151215, end: 20151216
  63. TECHNETIUM (99M TC) SESTAMIBI [Concomitant]
     Active Substance: TECHNETIUM TC-99M SESTAMIBI
     Dosage: 21.8 UNK, UNK
     Route: 042
     Dates: start: 20151216, end: 20151216
  64. POLYETHYLENE GLYCOL [Concomitant]
     Active Substance: POLYETHYLENE GLYCOLS
     Dosage: 17 G, UNK
     Route: 048
     Dates: start: 20151228, end: 20151229
  65. AMLODIPINE [Concomitant]
     Active Substance: AMLODIPINE BESYLATE
     Dosage: 5 MG, UNK
     Route: 048
     Dates: start: 20151229, end: 20160102
  66. DEXTROSE W/POTASSIUM CHLORIDE [Concomitant]
     Dosage: 250 UNK, UNK
     Route: 042
     Dates: start: 20151229, end: 20151230
  67. LEVOFLOXACIN. [Concomitant]
     Active Substance: LEVOFLOXACIN
     Dosage: 500 MG, UNK
     Dates: start: 20151230, end: 20160108
  68. MAGNESIUM SULFATE. [Concomitant]
     Active Substance: MAGNESIUM SULFATE
     Dosage: 2-4 G, UNK
     Route: 042
     Dates: start: 20160105, end: 20160113
  69. DECADRON [Concomitant]
     Active Substance: DEXAMETHASONE
     Dosage: 4 MG, UNK
  70. PERIDEX [Concomitant]
     Active Substance: CHLORHEXIDINE GLUCONATE
     Dosage: UNK UNK, BID
  71. AUGMENTIN [Concomitant]
     Active Substance: AMOXICILLIN\CLAVULANATE POTASSIUM
     Dosage: 875-125 MG, UNK FOR 14 DAYS
  72. ACYCLOVIR. [Concomitant]
     Active Substance: ACYCLOVIR
     Dosage: 400 MG, UNK
     Route: 048
     Dates: start: 20150506
  73. HYDROXYZINE [Concomitant]
     Active Substance: HYDROXYZINE HYDROCHLORIDE
     Dosage: 25 MG, UNK
     Route: 048
     Dates: start: 20160112
  74. CHOLECALCIFEROL [Concomitant]
     Active Substance: CHOLECALCIFEROL
     Dosage: 400 UNK,
     Route: 048
     Dates: start: 20150506
  75. LEXISCAN [Concomitant]
     Active Substance: REGADENOSON
     Dosage: 0.4 MG, UNK
     Route: 042
     Dates: start: 20151216, end: 20151216
  76. INSULIN ASPART [Concomitant]
     Active Substance: INSULIN ASPART
     Dosage: 12 UNK, UNK
     Route: 058
     Dates: start: 20151228, end: 20160113
  77. MAGNESIUM OXIDE. [Concomitant]
     Active Substance: MAGNESIUM OXIDE
     Dosage: 400 MG, UNK
     Route: 048
     Dates: start: 20160108, end: 20160128
  78. POTASSIUM PHOSPHATE [Concomitant]
     Active Substance: POTASSIUM PHOSPHATE
     Dosage: 250 MG, UNK
     Route: 048
     Dates: start: 20160113, end: 20160113
  79. HUMALOG [Concomitant]
     Active Substance: INSULIN LISPRO
     Dosage: 100 U/L, UNK

REACTIONS (2)
  - Osteonecrosis of jaw [Recovered/Resolved]
  - Cellulitis [Recovered/Resolved]

NARRATIVE: CASE EVENT DATE: 20170313
